FAERS Safety Report 24022197 (Version 2)
Quarter: 2024Q3

REPORT INFORMATION
  Report Type: Spontaneous
  Country: IN (occurrence: IN)
  Receive Date: 20240627
  Receipt Date: 20240710
  Transmission Date: 20241017
  Serious: No
  Sender: ROCHE
  Company Number: IN-ROCHE-3540370

PATIENT
  Age: 73 Year
  Sex: Male

DRUGS (5)
  1. VABYSMO [Suspect]
     Active Substance: FARICIMAB\FARICIMAB-SVOA
     Indication: Diabetic retinal oedema
     Dosage: FIRST INFUSION FOR RIGHT EYE
     Route: 050
     Dates: start: 20240120
  2. VABYSMO [Suspect]
     Active Substance: FARICIMAB\FARICIMAB-SVOA
     Dosage: SECOND INFUSION FOR RIGHT EYE
     Route: 050
     Dates: start: 20240224
  3. VABYSMO [Suspect]
     Active Substance: FARICIMAB\FARICIMAB-SVOA
     Dosage: FIRST INFUSION FOR LEFT EYE
     Route: 050
     Dates: start: 20240123
  4. VABYSMO [Suspect]
     Active Substance: FARICIMAB\FARICIMAB-SVOA
     Dosage: THIRD INFUSION FOR RIGHT EYE
     Route: 050
     Dates: start: 20240401
  5. LUBREX [Concomitant]
     Dosage: BOTH EYES
     Route: 047
     Dates: start: 20240120

REACTIONS (2)
  - Off label use [Unknown]
  - No adverse event [Unknown]
